FAERS Safety Report 7312771-5 (Version None)
Quarter: 2011Q1

REPORT INFORMATION
  Report Type: 
  Country: None (occurrence: None)
  Receive Date: 20110224
  Receipt Date: 20110214
  Transmission Date: 20110831
  Serious: Yes (Hospitalization)
  Sender: FDA-Public Use
  Company Number: CN-WATSON-2011-01835

PATIENT
  Sex: Male

DRUGS (3)
  1. FUROSEMIDE (WATSON LABORATORIES) [Suspect]
     Indication: CARDIAC FAILURE CONGESTIVE
     Dosage: 1 MG/KG, Q8H
     Route: 042
  2. CAPTOPRIL (WATSON LABORATORIES) [Suspect]
     Indication: DOUBLE OUTLET RIGHT VENTRICLE
     Dosage: 0.1 MG/KG, PER 8 HOURS
  3. CAPTOPRIL (WATSON LABORATORIES) [Suspect]
     Indication: CARDIAC FAILURE CONGESTIVE

REACTIONS (5)
  - OLIGURIA [None]
  - BLOOD CREATININE INCREASED [None]
  - BLOOD UREA INCREASED [None]
  - RENAL FAILURE ACUTE [None]
  - HYPERKALAEMIA [None]
